FAERS Safety Report 14008789 (Version 1)
Quarter: 2017Q3

REPORT INFORMATION
  Report Type: Spontaneous
  Country: US (occurrence: US)
  Receive Date: 20170925
  Receipt Date: 20170925
  Transmission Date: 20171128
  Serious: No
  Sender: FDA-Public Use
  Company Number: US-CELGENEUS-USA-20170905457

PATIENT

DRUGS (9)
  1. REVLIMID [Suspect]
     Active Substance: LENALIDOMIDE
     Indication: GLIOMA
     Route: 048
  2. IRINOTECAN [Concomitant]
     Active Substance: IRINOTECAN
     Indication: GLIOMA
     Route: 065
  3. REVLIMID [Suspect]
     Active Substance: LENALIDOMIDE
     Indication: OFF LABEL USE
  4. VINBLASTINE [Concomitant]
     Active Substance: VINBLASTINE
     Indication: GLIOMA
     Route: 065
  5. CYCLOPHOSPHAMIDE. [Concomitant]
     Active Substance: CYCLOPHOSPHAMIDE
     Indication: GLIOMA
     Route: 065
  6. TEMOZOLAMIDE [Concomitant]
     Active Substance: TEMOZOLOMIDE
     Indication: GLIOMA
     Route: 065
  7. ETOPOSIDE. [Concomitant]
     Active Substance: ETOPOSIDE
     Indication: GLIOMA
     Route: 065
  8. BEVACIZUMAB. [Concomitant]
     Active Substance: BEVACIZUMAB
     Indication: GLIOMA
     Route: 065
  9. VORINOSTAT [Concomitant]
     Active Substance: VORINOSTAT
     Indication: GLIOMA
     Route: 065

REACTIONS (3)
  - Nausea [Unknown]
  - Glioma [Unknown]
  - Drug dependence [Unknown]
